FAERS Safety Report 7034894-0 (Version None)
Quarter: 2010Q4

REPORT INFORMATION
  Report Type: 
  Country: None (occurrence: None)
  Receive Date: 20101008
  Receipt Date: 20101005
  Transmission Date: 20110411
  Serious: No
  Sender: FDA-Public Use
  Company Number: US-PFIZER INC-2010126558

PATIENT
  Sex: Female

DRUGS (3)
  1. CHANTIX [Suspect]
     Indication: SMOKING CESSATION THERAPY
     Dosage: 0.5 MG,DAILY
     Route: 048
     Dates: start: 20100924, end: 20101003
  2. CHANTIX [Suspect]
     Dosage: 1 MG, 2X/DAY
     Route: 048
     Dates: start: 20100924, end: 20101003
  3. OMEPRAZOLE [Concomitant]
     Indication: HIATUS HERNIA
     Dosage: 5 MG, DAILY
     Route: 048

REACTIONS (2)
  - DYSPEPSIA [None]
  - NAUSEA [None]
